FAERS Safety Report 9840039 (Version 1)
Quarter: 2014Q1

REPORT INFORMATION
  Report Type: Other
  Country: IT (occurrence: IT)
  Receive Date: 20140124
  Receipt Date: 20140124
  Transmission Date: 20141002
  Serious: Yes (Hospitalization)
  Sender: FDA-Public Use
  Company Number: IT-SUN PHARMACEUTICAL INDUSTRIES LTD-2014SUN00113

PATIENT
  Sex: 0

DRUGS (1)
  1. OXALIPLATINO SUN 5 MG/ML, CONCENTRATO PER SOLUZIONE PER INFUSIONE [Suspect]
     Indication: COLON CANCER METASTATIC
     Dosage: 170 MG, CYCLICAL
     Route: 042
     Dates: start: 20131220, end: 20131220

REACTIONS (5)
  - Throat tightness [Recovering/Resolving]
  - Retching [Recovering/Resolving]
  - Abdominal pain [Recovering/Resolving]
  - Flushing [Recovering/Resolving]
  - Nausea [Recovering/Resolving]
